FAERS Safety Report 23306447 (Version 1)
Quarter: 2023Q4

REPORT INFORMATION
  Report Type: Spontaneous
  Country: CN (occurrence: CN)
  Receive Date: 20231218
  Receipt Date: 20231218
  Transmission Date: 20240110
  Serious: Yes (Hospitalization)
  Sender: FDA-Public Use
  Company Number: CN-GLAXOSMITHKLINE-CNCH2023APC060799

PATIENT

DRUGS (7)
  1. MUPIROCIN [Suspect]
     Active Substance: MUPIROCIN
     Indication: Kerion
     Dosage: 1 MG, TID
     Route: 061
     Dates: start: 20230829, end: 20230905
  2. MUPIROCIN [Suspect]
     Active Substance: MUPIROCIN
     Indication: Infection
  3. TERBINAFINE HYDROCHLORIDE [Suspect]
     Active Substance: TERBINAFINE HYDROCHLORIDE
     Indication: Infection
     Dosage: UNK
     Dates: start: 20230829
  4. TERBINAFINE HYDROCHLORIDE [Suspect]
     Active Substance: TERBINAFINE HYDROCHLORIDE
     Indication: Infection
     Dosage: UNK
     Dates: start: 20230829
  5. CYSTEINE\GLYCINE\GLYCYRRHIZIN [Suspect]
     Active Substance: CYSTEINE\GLYCINE\GLYCYRRHIZIN
     Indication: Product used for unknown indication
     Dosage: UNK
     Dates: start: 20230829
  6. TRIAMCINOLONE ACETONIDE [Suspect]
     Active Substance: TRIAMCINOLONE ACETONIDE
     Indication: Infection
     Dosage: UNK
     Dates: start: 202309
  7. ECONAZOLE NITRATE [Suspect]
     Active Substance: ECONAZOLE NITRATE
     Indication: Infection
     Dosage: UNK
     Dates: start: 202309

REACTIONS (6)
  - Abscess [Recovered/Resolved]
  - Pruritus [Recovered/Resolved]
  - Pyrexia [Recovered/Resolved]
  - Rash [Recovered/Resolved]
  - Erythema [Recovered/Resolved]
  - Papule [Recovered/Resolved]

NARRATIVE: CASE EVENT DATE: 20230801
